FAERS Safety Report 19432597 (Version 1)
Quarter: 2021Q2

REPORT INFORMATION
  Report Type: Spontaneous
  Country: US (occurrence: US)
  Receive Date: 20210618
  Receipt Date: 20210618
  Transmission Date: 20210717
  Serious: No
  Sender: FDA-Public Use
  Company Number: US-009507513-2105USA005451

PATIENT
  Age: 3 Year
  Sex: Male

DRUGS (3)
  1. TEMODAR [Suspect]
     Active Substance: TEMOZOLOMIDE
     Indication: PANCREATOBLASTOMA
     Route: 048
  2. IRINOTECAN [Concomitant]
     Active Substance: IRINOTECAN
     Indication: PANCREATOBLASTOMA
  3. PALBOCICLIB [Concomitant]
     Active Substance: PALBOCICLIB
     Indication: PANCREATOBLASTOMA

REACTIONS (2)
  - Product use in unapproved indication [Unknown]
  - Product use issue [Unknown]
